FAERS Safety Report 15786578 (Version 1)
Quarter: 2018Q4

REPORT INFORMATION
  Report Type: Spontaneous
  Country: US (occurrence: US)
  Receive Date: 20181212
  Receipt Date: 20181212
  Transmission Date: 20190205
  Serious: No
  Sender: FDA-Public Use
  Company Number: None

PATIENT
  Age: 25 Year
  Sex: Male

DRUGS (1)
  1. ENBREL [Suspect]
     Active Substance: ETANERCEPT
     Indication: ANKYLOSING SPONDYLITIS
     Dosage: OTHER
     Route: 058
     Dates: start: 201712

REACTIONS (3)
  - Memory impairment [None]
  - Product dose omission [None]
  - Back pain [None]

NARRATIVE: CASE EVENT DATE: 20181203
